FAERS Safety Report 6616829-5 (Version None)
Quarter: 2010Q1

REPORT INFORMATION
  Report Type: 
  Country: None (occurrence: None)
  Receive Date: 20100301
  Receipt Date: 20100212
  Transmission Date: 20100710
  Serious: Yes (Death)
  Sender: FDA-Public Use
  Company Number: 1000012085

PATIENT
  Age: 45 Year
  Sex: Female

DRUGS (6)
  1. CITALOPRAM HYDROBROMIDE [Suspect]
  2. ETHANOL [Suspect]
  3. OXYCODONE HCL [Suspect]
  4. DIAZEPAM [Suspect]
  5. LORATADINE [Suspect]
  6. AMITRIPTYLINE HCL [Suspect]

REACTIONS (2)
  - CARDIAC ARREST [None]
  - RESPIRATORY ARREST [None]
